FAERS Safety Report 21604646 (Version 1)
Quarter: 2022Q4

REPORT INFORMATION
  Report Type: Report from Study
  Country: IT (occurrence: IT)
  Receive Date: 20221116
  Receipt Date: 20221116
  Transmission Date: 20230113
  Serious: Yes (Other)
  Sender: FDA-Public Use
  Company Number: None

PATIENT
  Age: 74 Year
  Sex: Female

DRUGS (7)
  1. FLUOXETINE HYDROCHLORIDE [Suspect]
     Active Substance: FLUOXETINE HYDROCHLORIDE
     Indication: Product used for unknown indication
     Dosage: UNIT DOSE :  `139 DAYS
     Route: 065
     Dates: start: 20220101, end: 20220520
  2. VIMPAT [Concomitant]
     Active Substance: LACOSAMIDE
     Indication: Product used for unknown indication
  3. LUVION [Concomitant]
     Indication: Product used for unknown indication
  4. PANTOPRAZOLE SODIUM [Concomitant]
     Active Substance: PANTOPRAZOLE SODIUM
     Indication: Product used for unknown indication
  5. BISOPROLOL HEMFUMARATE [Concomitant]
     Indication: Product used for unknown indication
  6. ELIQUIS [Concomitant]
     Active Substance: APIXABAN
     Indication: Product used for unknown indication
  7. LANOXIN [Concomitant]
     Active Substance: DIGOXIN
     Indication: Product used for unknown indication

REACTIONS (1)
  - Altered state of consciousness [Recovering/Resolving]

NARRATIVE: CASE EVENT DATE: 20220520
